FAERS Safety Report 7463485-2 (Version None)
Quarter: 2011Q2

REPORT INFORMATION
  Report Type: 
  Country: None (occurrence: None)
  Receive Date: 20110506
  Receipt Date: 20110422
  Transmission Date: 20111010
  Serious: Yes (Other)
  Sender: FDA-Public Use
  Company Number: PHHY2011BE33951

PATIENT
  Age: 79 Year
  Sex: Female

DRUGS (1)
  1. FEMARA [Suspect]
     Indication: BREAST CANCER RECURRENT
     Dosage: UNK
     Dates: start: 20110408

REACTIONS (3)
  - VISION BLURRED [None]
  - MACULAR DEGENERATION [None]
  - VISUAL ACUITY REDUCED [None]
